FAERS Safety Report 15623705 (Version 1)
Quarter: 2018Q4

REPORT INFORMATION
  Report Type: Report from Study
  Country: None (occurrence: US)
  Receive Date: 20181115
  Receipt Date: 20181115
  Transmission Date: 20190205
  Serious: Yes (Hospitalization)
  Sender: FDA-Public Use
  Company Number: US-ABBVIE-18K-163-2411207-00

PATIENT
  Sex: Male
  Weight: 136.2 kg

DRUGS (2)
  1. VENCLEXTA [Suspect]
     Active Substance: VENETOCLAX
     Indication: ACUTE MYELOID LEUKAEMIA
     Dosage: ONCE EVERY DAY IN THE MORNING
     Route: 048
     Dates: start: 201804, end: 20181018
  2. DECITABINE. [Concomitant]
     Active Substance: DECITABINE
     Indication: ACUTE MYELOID LEUKAEMIA
     Dosage: 5 DAYS ON AND 28 DAYS OFF, VIA PICC
     Dates: start: 201804

REACTIONS (2)
  - Intentional product use issue [Unknown]
  - Device related sepsis [Unknown]

NARRATIVE: CASE EVENT DATE: 2018
